FAERS Safety Report 16799286 (Version 1)
Quarter: 2019Q3

REPORT INFORMATION
  Report Type: Report from Study
  Country: US (occurrence: US)
  Receive Date: 20190912
  Receipt Date: 20190912
  Transmission Date: 20191005
  Serious: Yes (Other)
  Sender: FDA-Public Use
  Company Number: US-BEH-2019106830

PATIENT

DRUGS (4)
  1. HUMAN IMMUNOGLOBULIN (GENERIC) [Suspect]
     Active Substance: HUMAN IMMUNOGLOBULIN G
     Indication: TRANSPLANT REJECTION
     Dosage: 1 G/KG/DOSE ?2 DOSES
     Route: 042
  2. METHYLPREDNISOLONE. [Concomitant]
     Active Substance: METHYLPREDNISOLONE
     Dosage: 30 MG/KG/DOSE ?5 DOSES; MAX 1000 MG/DOSE
     Route: 065
  3. RITUXIMAB RECOMBINANT [Concomitant]
     Active Substance: RITUXIMAB
     Dosage: 375 MG/M2/DOSE ?2 DOSES
     Route: 065
  4. BORTEZOMIB ACCORD [Concomitant]
     Dosage: 1.3 MG/M2/DOSE ?4 DOSES
     Route: 065

REACTIONS (3)
  - No adverse event [Unknown]
  - Idiopathic intracranial hypertension [Unknown]
  - Product use in unapproved indication [Unknown]
